FAERS Safety Report 20567172 (Version 1)
Quarter: 2022Q1

REPORT INFORMATION
  Report Type: Spontaneous
  Country: US (occurrence: US)
  Receive Date: 20220308
  Receipt Date: 20220308
  Transmission Date: 20220423
  Serious: Yes (Other)
  Sender: FDA-Public Use
  Company Number: US-009507513-2203USA000963

PATIENT
  Age: 73 Year
  Sex: Female

DRUGS (6)
  1. DIFICID [Suspect]
     Active Substance: FIDAXOMICIN
     Indication: Clostridium difficile infection
     Dosage: 200MG DAILY FOR 10 DAYS
     Route: 048
     Dates: start: 20211218, end: 20211228
  2. VANCOMYCIN [Suspect]
     Active Substance: VANCOMYCIN
     Indication: Clostridium difficile infection
     Dosage: 125MG 4 TIMES DAILY FOR 14 DAYS
     Route: 048
     Dates: start: 20211208, end: 20211221
  3. VANCOMYCIN [Suspect]
     Active Substance: VANCOMYCIN
     Dosage: 250MG 4 TIMES DAILY FOR 14 DAYS
     Route: 048
     Dates: start: 20220223
  4. AMOXICILLIN [Suspect]
     Active Substance: AMOXICILLIN
     Indication: Sinusitis
     Dosage: UNK
     Route: 048
  5. LUNESTA [Concomitant]
     Active Substance: ESZOPICLONE
  6. VITAMINS NOS [Concomitant]
     Active Substance: VITAMINS
     Dosage: UNK

REACTIONS (3)
  - Clostridium difficile infection [Recovering/Resolving]
  - Therapeutic product effect incomplete [Unknown]
  - Product use issue [Unknown]

NARRATIVE: CASE EVENT DATE: 20211201
